FAERS Safety Report 6034775-5 (Version None)
Quarter: 2009Q1

REPORT INFORMATION
  Report Type: 
  Country: None (occurrence: None)
  Receive Date: 20090112
  Receipt Date: 20090105
  Transmission Date: 20090719
  Serious: No
  Sender: FDA-Public Use
  Company Number: GB-ELI_LILLY_AND_COMPANY-GB200901000611

PATIENT
  Sex: Male

DRUGS (1)
  1. OLANZAPINE [Suspect]

REACTIONS (1)
  - NEUTROPENIA [None]
